FAERS Safety Report 9288045 (Version 1)
Quarter: 2013Q2

REPORT INFORMATION
  Report Type: Spontaneous
  Country: US (occurrence: None)
  Receive Date: 20130513
  Receipt Date: 20130513
  Transmission Date: 20140414
  Serious: Yes (Other)
  Sender: FDA-Public Use
  Company Number: None

PATIENT
  Age: 6 Year
  Sex: Female
  Weight: 29 kg

DRUGS (2)
  1. AZITHROMYCIN ? [Suspect]
     Indication: PHARYNGITIS
     Route: 048
     Dates: start: 20130503, end: 20130508
  2. ZITHROMAX [Concomitant]

REACTIONS (3)
  - Polyuria [None]
  - Polydipsia [None]
  - Nephrogenic diabetes insipidus [None]
